FAERS Safety Report 16046499 (Version 1)
Quarter: 2019Q1

REPORT INFORMATION
  Report Type: Spontaneous
  Country: IN (occurrence: IN)
  Receive Date: 20190307
  Receipt Date: 20190307
  Transmission Date: 20190418
  Serious: Yes (Other)
  Sender: FDA-Public Use
  Company Number: PHHY2019IN047580

PATIENT
  Age: 25 Year
  Sex: Male

DRUGS (1)
  1. CARBAMAZEPINE. [Suspect]
     Active Substance: CARBAMAZEPINE
     Indication: TRIGEMINAL NEURALGIA
     Route: 065

REACTIONS (6)
  - Agitation [Unknown]
  - Nausea [Unknown]
  - Headache [Unknown]
  - Serotonin syndrome [Unknown]
  - Abdominal pain [Unknown]
  - Tremor [Unknown]
